FAERS Safety Report 7029464-4 (Version None)
Quarter: 2010Q4

REPORT INFORMATION
  Report Type: 
  Country: None (occurrence: None)
  Receive Date: 20101005
  Receipt Date: 20100928
  Transmission Date: 20110411
  Serious: Yes (Death, Hospitalization, Other)
  Sender: FDA-Public Use
  Company Number: US-AMGEN-QUU423136

PATIENT
  Sex: Female
  Weight: 80.4 kg

DRUGS (9)
  1. NPLATE [Suspect]
     Indication: IDIOPATHIC THROMBOCYTOPENIC PURPURA
     Route: 058
     Dates: start: 20100308, end: 20100621
  2. CORTICOSTEROIDS [Concomitant]
     Dates: start: 20091231
  3. PREDNISONE [Concomitant]
     Route: 048
  4. HYDROXOCOBALAMIN [Concomitant]
  5. TRAMADOL HCL [Concomitant]
     Route: 048
  6. BENADRYL [Concomitant]
     Route: 048
  7. DOCUSATE SODIUM [Concomitant]
     Route: 048
  8. PROPOXYPHENE HYDROCHLORIDE [Concomitant]
     Route: 048
  9. ALPRAZOLAM [Concomitant]
     Route: 048

REACTIONS (11)
  - COLON CANCER METASTATIC [None]
  - CONSTIPATION [None]
  - DEEP VEIN THROMBOSIS [None]
  - DEHYDRATION [None]
  - DRUG INEFFECTIVE [None]
  - ELECTROLYTE IMBALANCE [None]
  - FLUID IMBALANCE [None]
  - MYELODYSPLASTIC SYNDROME [None]
  - PYREXIA [None]
  - RENAL FAILURE ACUTE [None]
  - URINARY TRACT INFECTION [None]
